FAERS Safety Report 5836810-3 (Version None)
Quarter: 2008Q3

REPORT INFORMATION
  Report Type: 
  Country: None (occurrence: None)
  Receive Date: 20080806
  Receipt Date: 20080806
  Transmission Date: 20090109
  Serious: Yes (Hospitalization)
  Sender: FDA-Public Use
  Company Number: None

PATIENT
  Age: 71 Year
  Sex: Female
  Weight: 81.6475 kg

DRUGS (1)
  1. NITROFURANTOIN MACROCRYSTALLINE [Suspect]
     Indication: URINARY TRACT INFECTION
     Dosage: ONE CAPSULE TWICE A DAY PO
     Route: 048
     Dates: start: 20080606, end: 20080612

REACTIONS (3)
  - PRURITUS [None]
  - SKIN REACTION [None]
  - URTICARIA [None]
